APPROVED DRUG PRODUCT: LABETALOL HYDROCHLORIDE
Active Ingredient: LABETALOL HYDROCHLORIDE
Strength: 5MG/ML
Dosage Form/Route: INJECTABLE;INJECTION
Application: A079134 | Product #001
Applicant: ONESOURCE SPECIALTY PTE LTD
Approved: Feb 3, 2010 | RLD: No | RS: No | Type: DISCN